FAERS Safety Report 6768821-8 (Version None)
Quarter: 2010Q2

REPORT INFORMATION
  Report Type: 
  Country: None (occurrence: None)
  Receive Date: 20100611
  Receipt Date: 20100531
  Transmission Date: 20101027
  Serious: Yes (Hospitalization)
  Sender: FDA-Public Use
  Company Number: 1000014381

PATIENT
  Age: 91 Year
  Sex: Male

DRUGS (11)
  1. CITALOPRAM HYDROBROMIDE [Suspect]
     Indication: DEPRESSION
     Dosage: 20 MG (20 MG, 1 IN 1 D), ORAL
     Route: 048
     Dates: end: 20100120
  2. LYRICA [Suspect]
     Indication: EPILEPSY
     Dosage: 100 MG (50 MG, 2 IN 1 D), ORAL
     Route: 048
     Dates: end: 20100120
  3. FORLAX (POWDER) [Suspect]
     Indication: CONSTIPATION
     Dosage: 5 DOSES FORMS (5 DOSAGE FORMS, 1 IN 1 D), ORAL
     Route: 048
     Dates: end: 20100121
  4. KARDEGIC (POWDER) [Suspect]
     Dosage: 75 MG (75 MG, 1 IN 1 D), ORAL
     Route: 048
     Dates: start: 20090113, end: 20100120
  5. AMLOR (CAPSULES) [Suspect]
     Indication: HYPERTENSION
     Dosage: 10 MG (10 MG, 1 IN 1 D), ORAL
     Route: 048
     Dates: end: 20100121
  6. INEXIUM (TABLETS) [Suspect]
     Dosage: 20 MG (20MG, 1 IN 1 D), ORAL
     Route: 048
     Dates: end: 20100120
  7. ACETAMINOPHEN [Suspect]
     Indication: PAIN
     Dosage: 4 GM (4 GM, 1 IN 1 D), ORAL
     Route: 048
     Dates: start: 20090112, end: 20100121
  8. DIGOXIN [Concomitant]
  9. SOLUPRED [Concomitant]
  10. OXYCODONE HCL [Concomitant]
  11. ACTISKENAN [Concomitant]

REACTIONS (2)
  - LEUKOPENIA [None]
  - NEUTROPENIA [None]
